FAERS Safety Report 6098988-9 (Version None)
Quarter: 2009Q1

REPORT INFORMATION
  Report Type: 
  Country: None (occurrence: None)
  Receive Date: 20090302
  Receipt Date: 20090216
  Transmission Date: 20090719
  Serious: Yes (Other)
  Sender: FDA-Public Use
  Company Number: BR-ROCHE-614886

PATIENT
  Sex: Male
  Weight: 104 kg

DRUGS (2)
  1. ORLISTAT [Suspect]
     Indication: OBESITY
     Dosage: DOSE REPORTED AS 120 MG
     Route: 048
     Dates: start: 20070101
  2. SIBUTRAMINE [Concomitant]
     Route: 048
     Dates: start: 20070101

REACTIONS (3)
  - ABDOMINAL PAIN [None]
  - CHOLELITHIASIS [None]
  - DIARRHOEA [None]
